FAERS Safety Report 10803284 (Version 1)
Quarter: 2015Q1

REPORT INFORMATION
  Report Type: Report from Study
  Country: US (occurrence: US)
  Receive Date: 20150217
  Receipt Date: 20150217
  Transmission Date: 20150721
  Serious: Yes (Other)
  Sender: FDA-Public Use
  Company Number: US-BAYER-2015-023890

PATIENT

DRUGS (1)
  1. ASPIRIN. [Suspect]
     Active Substance: ASPIRIN
     Indication: DRUG PROVOCATION TEST
     Dosage: 81 MG, UNK
     Route: 048

REACTIONS (5)
  - Forced expiratory volume decreased [None]
  - Ear discomfort [None]
  - Aspirin-exacerbated respiratory disease [None]
  - Speech disorder [None]
  - Nasal congestion [None]
